FAERS Safety Report 25015742 (Version 2)
Quarter: 2025Q2

REPORT INFORMATION
  Report Type: Spontaneous
  Country: US (occurrence: US)
  Receive Date: 20250227
  Receipt Date: 20250401
  Transmission Date: 20250717
  Serious: No
  Sender: BLUEPRINT MEDICINES
  Company Number: US-Blueprint Medicines Corporation-2025-AER-00346

PATIENT
  Age: 78 Year
  Sex: Male

DRUGS (4)
  1. AYVAKIT [Suspect]
     Active Substance: AVAPRITINIB
     Indication: Systemic mastocytosis
     Route: 065
     Dates: start: 20230126
  2. AYVAKIT [Suspect]
     Active Substance: AVAPRITINIB
     Route: 065
  3. AYVAKIT [Suspect]
     Active Substance: AVAPRITINIB
     Route: 065
     Dates: start: 20230126
  4. AYVAKIT [Suspect]
     Active Substance: AVAPRITINIB
     Route: 065

REACTIONS (4)
  - Abdominal pain upper [Unknown]
  - Constipation [Recovering/Resolving]
  - Abdominal discomfort [Recovering/Resolving]
  - Rash [Not Recovered/Not Resolved]
